FAERS Safety Report 8784891 (Version 1)
Quarter: 2012Q4

REPORT INFORMATION
  Report Type: Spontaneous
  Country: None (occurrence: None)
  Receive Date: 20120831
  Receipt Date: 20120831
  Transmission Date: 20130627
  Serious: Yes (Death, Life-Threatening, Hospitalization)
  Sender: FDA-Public Use
  Company Number: 2012SP001254

PATIENT
  Age: 67 Year
  Sex: Male
  Weight: 89 kg

DRUGS (13)
  1. VANCOMYCIN [Suspect]
     Indication: DRUG USE FOR UNKNOWN INDICATION
     Route: 042
     Dates: start: 20111015, end: 20111016
  2. CRIZOTINIB [Suspect]
  3. LEVOTHYROXINE SODIUM [Suspect]
     Route: 048
     Dates: end: 20111105
  4. BENZONATATE [Suspect]
     Route: 048
     Dates: end: 20111105
  5. ASPIRIN [Suspect]
     Route: 048
     Dates: end: 20111105
  6. POTASSIUM CHLORIDE [Suspect]
     Route: 048
     Dates: end: 20111105
  7. ZETIA [Suspect]
     Route: 048
     Dates: end: 20111105
  8. ZOCOR [Suspect]
     Route: 048
     Dates: end: 20111105
  9. COREG [Suspect]
     Route: 048
     Dates: end: 20111010
  10. LASIX [Suspect]
     Route: 048
     Dates: end: 20111105
  11. FLUZONE [Suspect]
     Route: 058
     Dates: start: 20111005, end: 20111005
  12. LEVOFLOXACIN [Suspect]
     Route: 042
     Dates: start: 20111015, end: 20111018
  13. MEROPENEM [Suspect]
     Route: 042
     Dates: start: 20111015, end: 20111019

REACTIONS (21)
  - Disease progression [None]
  - Non-small cell lung cancer [None]
  - Failure to thrive [None]
  - Orthostatic hypotension [None]
  - Ileus [None]
  - Dyspnoea [None]
  - Ataxia [None]
  - Haemoglobin decreased [None]
  - Platelet count decreased [None]
  - Blood albumin decreased [None]
  - Syncope [None]
  - Dizziness [None]
  - Dizziness [None]
  - Splenic haematoma [None]
  - Left ventricular failure [None]
  - Left atrial dilatation [None]
  - Mitral valve incompetence [None]
  - Pulmonary valve incompetence [None]
  - Pleural effusion [None]
  - Atelectasis [None]
  - Metastases to pancreas [None]
